FAERS Safety Report 5165110-2 (Version None)
Quarter: 2006Q4

REPORT INFORMATION
  Report Type: 
  Country: None (occurrence: None)
  Receive Date: 20061127
  Receipt Date: 20061110
  Transmission Date: 20070319
  Serious: Yes (Disabling, Other)
  Sender: FDA-Public Use
  Company Number: 2006RR-04524

PATIENT
  Sex: Female

DRUGS (3)
  1. SIMVASTATIN [Suspect]
     Indication: HYPERCHOLESTEROLAEMIA
     Dosage: ORAL
     Route: 048
     Dates: end: 20060701
  2. ASPIRIN [Concomitant]
  3. RAMIPRIL [Concomitant]

REACTIONS (3)
  - SEXUAL DYSFUNCTION [None]
  - THERAPY NON-RESPONDER [None]
  - VAGINAL PAIN [None]
